FAERS Safety Report 13614209 (Version 2)
Quarter: 2018Q3

REPORT INFORMATION
  Report Type: Report from Study
  Country: US (occurrence: US)
  Receive Date: 20170606
  Receipt Date: 20180925
  Transmission Date: 20181010
  Serious: Yes (Other)
  Sender: FDA-Public Use
  Company Number: PHEH2017US016557

PATIENT
  Sex: Male

DRUGS (1)
  1. COSENTYX [Suspect]
     Active Substance: SECUKINUMAB
     Indication: PRODUCT USED FOR UNKNOWN INDICATION
     Dosage: UNK
     Route: 058
     Dates: start: 20170213

REACTIONS (6)
  - Arthritis [Unknown]
  - Psoriatic arthropathy [Unknown]
  - Nerve injury [Unknown]
  - Pain in extremity [Unknown]
  - Paraesthesia [Unknown]
  - Skin plaque [Unknown]
